FAERS Safety Report 9270596 (Version 3)
Quarter: 2014Q1

REPORT INFORMATION
  Report Type: Spontaneous
  Country: US (occurrence: US)
  Receive Date: 20130503
  Receipt Date: 20140101
  Transmission Date: 20141002
  Serious: Yes (Other)
  Sender: FDA-Public Use
  Company Number: US-US-EMD SERONO, INC.-7107770

PATIENT
  Sex: Female

DRUGS (3)
  1. REBIF [Suspect]
     Indication: MULTIPLE SCLEROSIS
     Route: 058
     Dates: start: 20110927, end: 201310
  2. METFORMIN [Concomitant]
     Indication: TYPE 2 DIABETES MELLITUS
     Dates: start: 2004
  3. GLUCOTROL [Concomitant]
     Indication: TYPE 2 DIABETES MELLITUS
     Dates: start: 2004

REACTIONS (1)
  - Blood glucose increased [Recovering/Resolving]
